FAERS Safety Report 16413669 (Version 1)
Quarter: 2019Q2

REPORT INFORMATION
  Report Type: Spontaneous
  Country: DE (occurrence: DE)
  Receive Date: 20190611
  Receipt Date: 20190611
  Transmission Date: 20190711
  Serious: Yes (Other)
  Sender: FDA-Public Use
  Company Number: DE-SA-2019SA148183

PATIENT
  Sex: Female
  Weight: 55 kg

DRUGS (1)
  1. ARAVA [Suspect]
     Active Substance: LEFLUNOMIDE
     Dosage: 20 MG, QD
     Route: 065

REACTIONS (5)
  - Renal failure [Unknown]
  - Muscle disorder [Unknown]
  - Fall [Unknown]
  - Tremor [Unknown]
  - Paralysis [Unknown]
